FAERS Safety Report 10018357 (Version 2)
Quarter: 2014Q1

REPORT INFORMATION
  Report Type: Spontaneous
  Country: CA (occurrence: CA)
  Receive Date: 20140318
  Receipt Date: 20140324
  Transmission Date: 20141002
  Serious: Yes (Other)
  Sender: FDA-Public Use
  Company Number: CA-VERTEX PHARMACEUTICALS INC-2014-001271

PATIENT
  Age: 55 Year
  Sex: Female

DRUGS (3)
  1. INCIVEK [Suspect]
     Indication: HEPATITIS C
     Route: 048
  2. PEGASYS [Suspect]
     Indication: HEPATITIS C
     Dosage: UNK, QW
     Route: 058
  3. RIBAVIRIN [Suspect]
     Indication: HEPATITIS C

REACTIONS (15)
  - Haemorrhage [Unknown]
  - Depression [Unknown]
  - Pyrexia [Unknown]
  - Alopecia [Unknown]
  - Pain [Unknown]
  - Crying [Unknown]
  - Decreased appetite [Unknown]
  - Pain in jaw [Unknown]
  - Nuchal rigidity [Unknown]
  - Musculoskeletal stiffness [Unknown]
  - Swelling [Unknown]
  - Asthenia [Unknown]
  - Fatigue [Unknown]
  - Rash [Unknown]
  - Nausea [Unknown]
